FAERS Safety Report 10595353 (Version 1)
Quarter: 2014Q4

REPORT INFORMATION
  Report Type: Spontaneous
  Country: US (occurrence: None)
  Receive Date: 20141119
  Receipt Date: 20141119
  Transmission Date: 20150529
  Serious: Yes (Hospitalization, Disabling, Other)
  Sender: FDA-Public Use
  Company Number: None

PATIENT
  Age: 79 Year
  Sex: Male

DRUGS (1)
  1. XTANDI [Suspect]
     Active Substance: ENZALUTAMIDE
     Indication: PROSTATE CANCER
     Route: 048
     Dates: start: 20140925, end: 20141021

REACTIONS (8)
  - Pneumonia [None]
  - Blood potassium decreased [None]
  - Pain [None]
  - Dehydration [None]
  - Musculoskeletal stiffness [None]
  - Nausea [None]
  - Dysarthria [None]
  - Decreased appetite [None]

NARRATIVE: CASE EVENT DATE: 20141028
